FAERS Safety Report 18427528 (Version 1)
Quarter: 2020Q4

REPORT INFORMATION
  Report Type: Spontaneous
  Country: US (occurrence: US)
  Receive Date: 20201026
  Receipt Date: 20201026
  Transmission Date: 20210114
  Serious: Yes (Other)
  Sender: FDA-Public Use
  Company Number: US-BAYER-2020-226452

PATIENT
  Age: 63 Year
  Sex: Female

DRUGS (2)
  1. CLARITIN [Suspect]
     Active Substance: LORATADINE
  2. IMBRUVICA [Suspect]
     Active Substance: IBRUTINIB
     Dosage: 420 MG
     Route: 048
     Dates: start: 20201020

REACTIONS (13)
  - Discomfort [Unknown]
  - Bone pain [Unknown]
  - Blood bilirubin increased [Unknown]
  - Peripheral swelling [Unknown]
  - Precancerous skin lesion [Unknown]
  - Arthropod bite [Unknown]
  - Flatulence [Unknown]
  - Lymphadenopathy [Unknown]
  - Pain [Unknown]
  - Fatigue [None]
  - Gastrooesophageal reflux disease [Unknown]
  - Skin reaction [Unknown]
  - White blood cell count abnormal [Unknown]

NARRATIVE: CASE EVENT DATE: 2020
